FAERS Safety Report 9197139 (Version 2)
Quarter: 2013Q2

REPORT INFORMATION
  Report Type: Report from Study
  Country: BR (occurrence: BR)
  Receive Date: 20130328
  Receipt Date: 20130416
  Transmission Date: 20140414
  Serious: Yes (Disabling, Other)
  Sender: FDA-Public Use
  Company Number: BR-ABBOTT-12P-020-0975999-00

PATIENT
  Age: 57 Year
  Sex: Male
  Weight: 94 kg

DRUGS (10)
  1. HUMIRA [Suspect]
     Indication: PSORIATIC ARTHROPATHY
     Route: 058
     Dates: start: 201205, end: 20130101
  2. PREDNISONE [Concomitant]
     Indication: PSORIATIC ARTHROPATHY
     Route: 048
     Dates: start: 201205
  3. CAPTOPRIL [Concomitant]
     Indication: HYPERTENSION
     Route: 048
  4. ALLOPURINOL [Concomitant]
     Indication: BLOOD PRESSURE
     Dosage: 1 TABLET DAILY
     Route: 048
  5. ENALAPRIL (HIPERTIN) [Concomitant]
     Indication: BLOOD PRESSURE
     Dosage: 1 TABLET DAILY
     Route: 048
  6. DICLOFENAC [Concomitant]
     Indication: PAIN
     Route: 048
     Dates: start: 201301
  7. DICLOFENAC [Concomitant]
     Indication: RHEUMATIC DISORDER
  8. NIFEDIPINE [Concomitant]
     Indication: HYPERTENSION
     Route: 048
  9. PROPANOLOL [Concomitant]
     Indication: HYPERTENSION
     Route: 048
  10. OMEPRAZOLE [Concomitant]
     Indication: GASTRIC DISORDER
     Route: 048

REACTIONS (7)
  - Gait disturbance [Recovering/Resolving]
  - Injected limb mobility decreased [Not Recovered/Not Resolved]
  - Pain in extremity [Not Recovered/Not Resolved]
  - Pain [Not Recovered/Not Resolved]
  - Pain [Recovering/Resolving]
  - Pain [Recovering/Resolving]
  - Drug ineffective [Recovered/Resolved]
